FAERS Safety Report 23942722 (Version 1)
Quarter: 2024Q2

REPORT INFORMATION
  Report Type: Spontaneous
  Country: US (occurrence: None)
  Receive Date: 20240605
  Receipt Date: 20240605
  Transmission Date: 20240715
  Serious: Yes (Death)
  Sender: FDA-Public Use
  Company Number: None

PATIENT
  Age: 66 Year
  Sex: Male
  Weight: 118 kg

DRUGS (10)
  1. IMATINIB [Suspect]
     Active Substance: IMATINIB
     Indication: Gastrointestinal neoplasm
     Dosage: FREQUENCY : DAILY;?
     Route: 048
     Dates: start: 20191115
  2. DILTIAZEM [Concomitant]
     Active Substance: DILTIAZEM
  3. ATORVASTATIN [Concomitant]
     Active Substance: ATORVASTATIN
  4. GLIPIZIDE [Concomitant]
     Active Substance: GLIPIZIDE
  5. LOSARTAN [Concomitant]
     Active Substance: LOSARTAN
  6. METFORMIN [Concomitant]
     Active Substance: METFORMIN HYDROCHLORIDE
  7. METOPROLOL SUCCINATE [Concomitant]
     Active Substance: METOPROLOL SUCCINATE
  8. TAMSULOSIN [Concomitant]
     Active Substance: TAMSULOSIN
  9. VENLAFAXINE [Concomitant]
     Active Substance: VENLAFAXINE HYDROCHLORIDE
  10. XARELTO [Concomitant]
     Active Substance: RIVAROXABAN

REACTIONS (1)
  - Death [None]

NARRATIVE: CASE EVENT DATE: 20240501
